FAERS Safety Report 4692272-3 (Version None)
Quarter: 2005Q2

REPORT INFORMATION
  Report Type: 
  Country: None (occurrence: None)
  Receive Date: 20050614
  Receipt Date: 20050608
  Transmission Date: 20051028
  Serious: Yes (Death)
  Sender: FDA-Public Use
  Company Number: HQWYE326208JUN05

PATIENT
  Age: 50 Year
  Sex: Male

DRUGS (2)
  1. PANTOPRAZOLE SODIUM [Suspect]
     Dosage: 40 MG 1X PER 1 DAY ORAL
     Route: 048
     Dates: start: 20050518, end: 20050518
  2. PANTOPRAZOLE SODIUM [Suspect]
     Dosage: 40 MG 1X PER 1 DAY ORAL
     Route: 048
     Dates: start: 20050525, end: 20050525

REACTIONS (1)
  - COMPLETED SUICIDE [None]
